FAERS Safety Report 4970616-2 (Version None)
Quarter: 2006Q2

REPORT INFORMATION
  Report Type: 
  Country: None (occurrence: None)
  Receive Date: 20060412
  Receipt Date: 20041228
  Transmission Date: 20061013
  Serious: Yes (Death)
  Sender: FDA-Public Use
  Company Number: US-MERCK-0412USA03193

PATIENT
  Age: 62 Year
  Sex: Female
  Weight: 85 kg

DRUGS (4)
  1. VIOXX [Suspect]
     Indication: ARTHRITIS
     Route: 048
     Dates: start: 20020321, end: 20021130
  2. ADVIL [Suspect]
     Indication: PAIN
     Route: 065
  3. ALLEGRA [Concomitant]
     Route: 065
     Dates: start: 20010701, end: 20021101
  4. SINGULAIR [Concomitant]
     Route: 048
     Dates: start: 20010701, end: 20021101

REACTIONS (8)
  - CELLULITIS [None]
  - CONGESTIVE CARDIOMYOPATHY [None]
  - DYSPEPSIA [None]
  - GASTROENTERITIS VIRAL [None]
  - PAIN IN EXTREMITY [None]
  - RASH [None]
  - TENDONITIS [None]
  - TINEA INFECTION [None]
